FAERS Safety Report 5880523-9 (Version None)
Quarter: 2008Q3

REPORT INFORMATION
  Report Type: 
  Country: None (occurrence: None)
  Receive Date: 20080912
  Receipt Date: 20080901
  Transmission Date: 20090109
  Serious: Yes (Other)
  Sender: FDA-Public Use
  Company Number: ES-ELI_LILLY_AND_COMPANY-ES200809000644

PATIENT
  Age: 12 Year
  Sex: Female
  Weight: 50 kg

DRUGS (4)
  1. STRATTERA [Suspect]
     Indication: ATTENTION DEFICIT/HYPERACTIVITY DISORDER
     Dosage: 10 MG, UNKNOWN
     Route: 048
     Dates: start: 20080201, end: 20080101
  2. STRATTERA [Suspect]
     Dosage: 20 MG, UNKNOWN
     Route: 048
     Dates: start: 20080101, end: 20080101
  3. STRATTERA [Suspect]
     Dosage: 25 MG, UNKNOWN
     Route: 048
     Dates: start: 20080507, end: 20080613
  4. METHYLPHENIDATE HCL [Concomitant]
     Dosage: UNK, UNKNOWN
     Route: 065

REACTIONS (2)
  - ELECTROCARDIOGRAM ST SEGMENT ELEVATION [None]
  - TACHYCARDIA [None]
